FAERS Safety Report 14558800 (Version 1)
Quarter: 2018Q1

REPORT INFORMATION
  Report Type: Spontaneous
  Country: US (occurrence: US)
  Receive Date: 20180221
  Receipt Date: 20180221
  Transmission Date: 20180509
  Serious: No
  Sender: FDA-Public Use
  Company Number: US-EISAI MEDICAL RESEARCH-EC-2018-036170

PATIENT
  Sex: Male

DRUGS (10)
  1. CBD OIL [Suspect]
     Active Substance: CANNABIDIOL
     Indication: PRODUCT USED FOR UNKNOWN INDICATION
     Dosage: 4/8 DROPS
     Route: 048
  2. FELBAMATE. [Concomitant]
     Active Substance: FELBAMATE
  3. DIASTAT [Concomitant]
     Active Substance: DIAZEPAM
  4. BANZEL [Suspect]
     Active Substance: RUFINAMIDE
     Route: 048
     Dates: start: 20180131, end: 20180208
  5. BANZEL [Suspect]
     Active Substance: RUFINAMIDE
     Route: 048
     Dates: start: 20180209
  6. ZOFRAN [Concomitant]
     Active Substance: ONDANSETRON HYDROCHLORIDE
  7. ONFI [Concomitant]
     Active Substance: CLOBAZAM
     Dosage: 5/5
     Dates: end: 20180108
  8. VIMPAT [Concomitant]
     Active Substance: LACOSAMIDE
  9. BANZEL [Suspect]
     Active Substance: RUFINAMIDE
     Indication: PRODUCT USED FOR UNKNOWN INDICATION
     Route: 048
     Dates: end: 20180130
  10. ONFI [Concomitant]
     Active Substance: CLOBAZAM
     Dosage: UNKNOWN DECREASED DOSE
     Dates: start: 20180109

REACTIONS (2)
  - Gait disturbance [Unknown]
  - Drug level increased [Unknown]

NARRATIVE: CASE EVENT DATE: 20180128
